FAERS Safety Report 7064590-5 (Version None)
Quarter: 2010Q4

REPORT INFORMATION
  Report Type: 
  Country: None (occurrence: None)
  Receive Date: 20101022
  Receipt Date: 20101022
  Transmission Date: 20110411
  Serious: No
  Sender: FDA-Public Use
  Company Number: None

PATIENT
  Age: 70 Year
  Sex: Male
  Weight: 77.1115 kg

DRUGS (1)
  1. CARDIBOPA 2 MG [Suspect]

REACTIONS (3)
  - LACRIMATION INCREASED [None]
  - OCULAR HYPERAEMIA [None]
  - VISION BLURRED [None]
